FAERS Safety Report 8103456-6 (Version None)
Quarter: 2012Q1

REPORT INFORMATION
  Report Type: 
  Country: None (occurrence: None)
  Receive Date: 20120201
  Receipt Date: 20120120
  Transmission Date: 20120608
  Serious: Yes (Other)
  Sender: FDA-Public Use
  Company Number: PHEH2012US001134

PATIENT
  Sex: Male
  Weight: 85.261 kg

DRUGS (3)
  1. LIPITOR [Concomitant]
     Indication: HYPERLIPIDAEMIA
     Dosage: 1 DF, QD
  2. DIOVAN HCT [Suspect]
     Indication: HYPERTENSION
     Dosage: UNK
  3. LOTREL [Suspect]
     Indication: HYPERTENSION
     Dosage: UNK

REACTIONS (8)
  - CEREBROVASCULAR ACCIDENT [None]
  - CEREBRAL INFARCTION [None]
  - HYPERTENSION [None]
  - DERMATITIS ATOPIC [None]
  - SPEECH DISORDER [None]
  - HYPERTENSIVE ENCEPHALOPATHY [None]
  - DERMATITIS [None]
  - RASH [None]
